FAERS Safety Report 8832593 (Version 1)
Quarter: 2012Q4

REPORT INFORMATION
  Report Type: 
  Country: US (occurrence: None)
  Receive Date: 20121009
  Receipt Date: 20121009
  Transmission Date: 20130627
  Serious: Yes (Hospitalization)
  Sender: FDA-Public Use
  Company Number: None

PATIENT
  Age: 90 Year
  Sex: Male
  Weight: 85 kg

DRUGS (10)
  1. TRIMETHOPRIM AND SULFAMETHOXAZOLE [Suspect]
     Indication: CELLULITIS
     Route: 048
  2. CEPHALEXIN [Suspect]
     Indication: CELLULITIS
     Route: 048
  3. ALBUTEROL [Concomitant]
  4. BECLOMETHASONE [Concomitant]
  5. DILTIAZEM XR [Concomitant]
  6. FLUTICASONE [Concomitant]
  7. HCTZ [Concomitant]
  8. SALMETEROL [Concomitant]
  9. THEOPHYLLINE LA [Concomitant]
  10. TRIAMCINOLONE CREAM [Concomitant]

REACTIONS (2)
  - Rash pruritic [None]
  - Renal failure acute [None]
